FAERS Safety Report 4983529-7 (Version None)
Quarter: 2006Q2

REPORT INFORMATION
  Report Type: 
  Country: None (occurrence: None)
  Receive Date: 20060426
  Receipt Date: 20060417
  Transmission Date: 20061013
  Serious: Yes (Other)
  Sender: FDA-Public Use
  Company Number: US-BRISTOL-MYERS SQUIBB COMPANY-13349857

PATIENT
  Age: 59 Year
  Sex: Male

DRUGS (1)
  1. DEFINITY [Suspect]
     Route: 040
     Dates: start: 20060414

REACTIONS (2)
  - THROAT TIGHTNESS [None]
  - URTICARIA [None]
